FAERS Safety Report 6738350-6 (Version None)
Quarter: 2010Q2

REPORT INFORMATION
  Report Type: 
  Country: None (occurrence: None)
  Receive Date: 20100520
  Receipt Date: 20100507
  Transmission Date: 20101027
  Serious: Yes (Other)
  Sender: FDA-Public Use
  Company Number: 7004529

PATIENT
  Age: 45 Year
  Sex: Female

DRUGS (2)
  1. SAIZEN [Suspect]
     Indication: BLOOD GROWTH HORMONE
     Dosage: 8.8 MG, 1 IN 1 D
     Dates: start: 20090601
  2. 7 OTHER HORMONES (OTHER HORMONES) [Concomitant]

REACTIONS (5)
  - ASTHENIA [None]
  - FATIGUE [None]
  - MALAISE [None]
  - PAIN [None]
  - PITUITARY TUMOUR [None]
